FAERS Safety Report 25181932 (Version 1)
Quarter: 2025Q2

REPORT INFORMATION
  Report Type: Spontaneous
  Country: US (occurrence: US)
  Receive Date: 20250410
  Receipt Date: 20250410
  Transmission Date: 20250716
  Serious: Yes (Hospitalization)
  Sender: JOHNSON AND JOHNSON
  Company Number: US-JNJFOC-20250389639

PATIENT
  Age: 75 Year
  Sex: Male

DRUGS (12)
  1. TECVAYLI [Suspect]
     Active Substance: TECLISTAMAB-CQYV
     Indication: Product used for unknown indication
     Dates: start: 20250321
  2. TECVAYLI [Suspect]
     Active Substance: TECLISTAMAB-CQYV
     Dates: start: 20250324
  3. TECVAYLI [Suspect]
     Active Substance: TECLISTAMAB-CQYV
     Dates: start: 20250327
  4. ACYCLOVIR [Concomitant]
     Active Substance: ACYCLOVIR
  5. BACTRIM [Concomitant]
     Active Substance: SULFAMETHOXAZOLE\TRIMETHOPRIM
  6. LIPITOR [Concomitant]
     Active Substance: ATORVASTATIN CALCIUM
  7. ALPHAGAN P [Concomitant]
     Active Substance: BRIMONIDINE TARTRATE
  8. TIMOLOL [Concomitant]
     Active Substance: TIMOLOL
  9. ERYTHROPOIETIN [Concomitant]
     Active Substance: ERYTHROPOIETIN
  10. VITAMIN B12 [Concomitant]
     Active Substance: CYANOCOBALAMIN
     Route: 048
  11. FOLIC ACID [Concomitant]
     Active Substance: FOLIC ACID
     Route: 048
  12. XARELTO [Concomitant]
     Active Substance: RIVAROXABAN
     Indication: Product used for unknown indication

REACTIONS (2)
  - Cytokine release syndrome [Unknown]
  - Immune effector cell-associated neurotoxicity syndrome [Unknown]

NARRATIVE: CASE EVENT DATE: 20250328
